FAERS Safety Report 19501005 (Version 1)
Quarter: 2021Q3

REPORT INFORMATION
  Report Type: Spontaneous
  Country: US (occurrence: US)
  Receive Date: 20210706
  Receipt Date: 20210706
  Transmission Date: 20211014
  Serious: No
  Sender: FDA-Public Use
  Company Number: None

PATIENT
  Age: 20 Year
  Sex: Male
  Weight: 72 kg

DRUGS (1)
  1. SIMPLY SALINE WOUND WASH [Suspect]
     Active Substance: BENZETHONIUM CHLORIDE
     Indication: NASAL IRRIGATION
     Dates: start: 20210625, end: 20210626

REACTIONS (6)
  - Vomiting [None]
  - Burning sensation [None]
  - Shock [None]
  - Accidental exposure to product [None]
  - Product dispensing error [None]
  - Product label confusion [None]

NARRATIVE: CASE EVENT DATE: 20210625
